FAERS Safety Report 7931908-8 (Version None)
Quarter: 2011Q4

REPORT INFORMATION
  Report Type: 
  Country: None (occurrence: None)
  Receive Date: 20111121
  Receipt Date: 20111110
  Transmission Date: 20120403
  Serious: Yes (Hospitalization, Other)
  Sender: FDA-Public Use
  Company Number: US-BAYER-2011-044038

PATIENT
  Age: 23 Year
  Sex: Female
  Weight: 116 kg

DRUGS (8)
  1. NAPROXEN (ALEVE) [Concomitant]
  2. CETIRIZINE HCL [Concomitant]
  3. DROSPIRENONE AND ETHINYL ESTRADIOL [Suspect]
     Dosage: UNK
     Route: 048
  4. AZITHROMYCIN [Concomitant]
  5. METFORMIN HCL [Concomitant]
  6. JUNEL FE 1.5/30 [Concomitant]
  7. CHERATUSSIN [Concomitant]
  8. IBUPROFEN [Concomitant]

REACTIONS (9)
  - NAUSEA [None]
  - EMOTIONAL DISTRESS [None]
  - GALLBLADDER DISORDER [None]
  - CHOLELITHIASIS [None]
  - ABDOMINAL PAIN UPPER [None]
  - CHOLECYSTITIS [None]
  - PAIN [None]
  - CHOLECYSTITIS CHRONIC [None]
  - INJURY [None]
